FAERS Safety Report 6472741-6 (Version None)
Quarter: 2009Q4

REPORT INFORMATION
  Report Type: 
  Country: None (occurrence: None)
  Receive Date: 20091201
  Receipt Date: 20091120
  Transmission Date: 20100525
  Serious: Yes (Hospitalization)
  Sender: FDA-Public Use
  Company Number: 2009US004156

PATIENT
  Age: 92 Year
  Sex: Female

DRUGS (3)
  1. VESICARE [Suspect]
     Indication: DRUG USE FOR UNKNOWN INDICATION
     Dosage: 5 MG, UID.QD, ORAL
     Route: 048
     Dates: start: 20091005
  2. SYNTHROID [Concomitant]
  3. ARICEPT [Concomitant]

REACTIONS (4)
  - FACE OEDEMA [None]
  - FLUID RETENTION [None]
  - MALAISE [None]
  - PULMONARY OEDEMA [None]
